FAERS Safety Report 17665951 (Version 1)
Quarter: 2020Q2

REPORT INFORMATION
  Report Type: Spontaneous
  Country: US (occurrence: US)
  Receive Date: 20200413
  Receipt Date: 20200413
  Transmission Date: 20200713
  Serious: No
  Sender: FDA-Public Use
  Company Number: None

PATIENT
  Age: 63 Year
  Sex: Female

DRUGS (1)
  1. TRETINOIN CAP 10MG [Suspect]
     Active Substance: TRETINOIN
     Route: 048
     Dates: start: 20200401

REACTIONS (4)
  - Constipation [None]
  - Peripheral swelling [None]
  - Nausea [None]
  - Dry skin [None]

NARRATIVE: CASE EVENT DATE: 20200330
